FAERS Safety Report 18834952 (Version 2)
Quarter: 2022Q1

REPORT INFORMATION
  Report Type: Spontaneous
  Country: US (occurrence: US)
  Receive Date: 20210203
  Receipt Date: 20220127
  Transmission Date: 20220423
  Serious: No
  Sender: FDA-Public Use
  Company Number: US-ALLERGAN-2035201US

PATIENT
  Sex: Female

DRUGS (4)
  1. BOTOX [Suspect]
     Active Substance: ONABOTULINUMTOXINA
     Indication: Migraine
     Dosage: 200 UNITS, SINGLE
     Dates: start: 20200527, end: 20200527
  2. VITAMIN C                          /00008001/ [Concomitant]
  3. PROVENTIL                          /00139501/ [Concomitant]
     Dosage: INHALER
     Route: 055
  4. POTASSIUM [Concomitant]
     Active Substance: POTASSIUM

REACTIONS (2)
  - Pregnancy [Unknown]
  - Off label use [Unknown]
